FAERS Safety Report 9074855 (Version 1)
Quarter: 2013Q1

REPORT INFORMATION
  Report Type: Spontaneous
  Country: US (occurrence: US)
  Receive Date: 20130129
  Receipt Date: 20130129
  Transmission Date: 20140127
  Serious: No
  Sender: FDA-Public Use
  Company Number: US-ABBOTT-12P-163-0979938-00

PATIENT
  Age: 27 Year
  Sex: Female

DRUGS (3)
  1. LUPRON DEPOT [Suspect]
     Indication: HORMONE SUPPRESSION THERAPY
     Dates: start: 20120314, end: 20120420
  2. LUPRON DEPOT [Suspect]
     Indication: ORGAN PRESERVATION
  3. CHEMOTHERAPY [Concomitant]

REACTIONS (1)
  - Off label use [Unknown]
